FAERS Safety Report 9547073 (Version 1)
Quarter: 2013Q2

REPORT INFORMATION
  Report Type: Spontaneous
  Country: US (occurrence: None)
  Receive Date: 20130606
  Receipt Date: 20130606
  Transmission Date: 20140414
  Serious: Yes (Hospitalization)
  Sender: FDA-Public Use
  Company Number: 163-POMAL-13044912

PATIENT
  Age: 90 Year
  Sex: Male
  Weight: 85.28 kg

DRUGS (5)
  1. POMALYST [Suspect]
     Indication: PLASMA CELL MYELOMA
     Dosage: 2 MG, 21 IN 21 D, PO
     Route: 048
     Dates: start: 20130228, end: 20130412
  2. GLYBURIDE (GLIBENCLAMIDE) (UNKNOWN) [Concomitant]
  3. LEVOTHYROXINE (LEVOTHYROXINE) (UNKNOWN) [Concomitant]
  4. AMLODIPINE (AMLODIPINE) (UNKNOWN) [Concomitant]
  5. XARELTO (RIVAROXABAN) (UNKNOWN) [Concomitant]

REACTIONS (1)
  - Deep vein thrombosis [None]
